FAERS Safety Report 25652864 (Version 2)
Quarter: 2025Q3

REPORT INFORMATION
  Report Type: Spontaneous
  Country: US (occurrence: US)
  Receive Date: 20250807
  Receipt Date: 20250910
  Transmission Date: 20251020
  Serious: No
  Sender: SANOFI AVENTIS
  Company Number: US-SA-2025SA230937

PATIENT
  Age: 79 Year
  Sex: Female

DRUGS (19)
  1. DUPIXENT [Suspect]
     Active Substance: DUPILUMAB
     Indication: Asthma
     Dosage: 300 MG, QOW
     Route: 058
     Dates: start: 20250720
  2. ALBUTEROL SULFATE [Concomitant]
     Active Substance: ALBUTEROL SULFATE
  3. CLOTRIMAZOLE [Concomitant]
     Active Substance: CLOTRIMAZOLE
  4. COMIRNATY [Concomitant]
  5. DILTIAZEM HYDROCHLORIDE [Concomitant]
     Active Substance: DILTIAZEM HYDROCHLORIDE
  6. FARXIGA [Concomitant]
     Active Substance: DAPAGLIFLOZIN PROPANEDIOL
  7. FUROSEMIDE [Concomitant]
     Active Substance: FUROSEMIDE
  8. GABAPENTIN [Concomitant]
     Active Substance: GABAPENTIN
  9. IPRATROPIUM [Concomitant]
     Active Substance: IPRATROPIUM
  10. LANTUS SOLOSTAR [Concomitant]
     Active Substance: INSULIN GLARGINE
  11. MONTELUKAST [Concomitant]
     Active Substance: MONTELUKAST
  12. MYRBETRIQ [Concomitant]
     Active Substance: MIRABEGRON
  13. NOVOLOG [Concomitant]
     Active Substance: INSULIN ASPART
  14. PANTOPRAZOLE [Concomitant]
     Active Substance: PANTOPRAZOLE
  15. PREDNISONE [Concomitant]
     Active Substance: PREDNISONE
  16. SIMVASTATIN [Concomitant]
     Active Substance: SIMVASTATIN
  17. JANUVIA [Concomitant]
     Active Substance: SITAGLIPTIN PHOSPHATE
  18. CITALOPRAM [Concomitant]
     Active Substance: CITALOPRAM
  19. PREDNISONE [Concomitant]
     Active Substance: PREDNISONE

REACTIONS (3)
  - Cough [Not Recovered/Not Resolved]
  - Nasopharyngitis [Not Recovered/Not Resolved]
  - Extra dose administered [Unknown]

NARRATIVE: CASE EVENT DATE: 20250803
